FAERS Safety Report 5200463-8 (Version None)
Quarter: 2007Q1

REPORT INFORMATION
  Report Type: 
  Country: None (occurrence: None)
  Receive Date: 20070105
  Receipt Date: 20070102
  Transmission Date: 20070707
  Serious: Yes (Other)
  Sender: FDA-Public Use
  Company Number: DE-MERCK-0701DEU00005

PATIENT
  Sex: Male

DRUGS (1)
  1. PRIMAXIN [Suspect]
     Indication: PYREXIA
     Route: 041
     Dates: start: 20060101

REACTIONS (1)
  - RHABDOMYOLYSIS [None]
